FAERS Safety Report 6682816-4 (Version None)
Quarter: 2010Q2

REPORT INFORMATION
  Report Type: 
  Country: None (occurrence: None)
  Receive Date: 20100413
  Receipt Date: 20100330
  Transmission Date: 20101027
  Serious: Yes (Hospitalization)
  Sender: FDA-Public Use
  Company Number: 2010SP000978

PATIENT
  Age: 43 Year
  Sex: Female

DRUGS (4)
  1. OMNARIS [Suspect]
     Indication: RHINITIS ALLERGIC
     Dosage: 200 UG; QD; NASAL
     Route: 045
     Dates: start: 20100301, end: 20100301
  2. NASACORT [Concomitant]
  3. SYMBICORT [Concomitant]
  4. CORTICOSTEROIDS [Concomitant]

REACTIONS (3)
  - NASAL CONGESTION [None]
  - NASAL OEDEMA [None]
  - STATUS ASTHMATICUS [None]
